FAERS Safety Report 6150307-5 (Version None)
Quarter: 2009Q2

REPORT INFORMATION
  Report Type: 
  Country: None (occurrence: None)
  Receive Date: 20090409
  Receipt Date: 20090406
  Transmission Date: 20091009
  Serious: Yes (Hospitalization)
  Sender: FDA-Public Use
  Company Number: AU-B.I. PHARMACEUTICALS,INC./RIDGEFIELD-2009-BP-04390AU

PATIENT

DRUGS (1)
  1. SPIRIVA [Suspect]
     Indication: UNEVALUABLE EVENT

REACTIONS (1)
  - MYOCARDIAL INFARCTION [None]
